FAERS Safety Report 16222806 (Version 4)
Quarter: 2019Q3

REPORT INFORMATION
  Report Type: Report from Study
  Country: ES (occurrence: ES)
  Receive Date: 20190422
  Receipt Date: 20190710
  Transmission Date: 20191004
  Serious: Yes (Hospitalization)
  Sender: FDA-Public Use
  Company Number: ES-GLAXOSMITHKLINE-ES2019070493

PATIENT
  Age: 64 Year
  Sex: Male
  Weight: 75 kg

DRUGS (11)
  1. ADIRO [Concomitant]
     Active Substance: ASPIRIN
     Dosage: 100 MG, 1D
     Route: 048
     Dates: start: 20190416, end: 20190423
  2. MASDIL RETARD [Concomitant]
     Active Substance: DILTIAZEM HYDROCHLORIDE
     Dosage: 120 MG, BID
     Route: 048
     Dates: start: 20190416, end: 20190423
  3. SEGURIL [Concomitant]
     Active Substance: FUROSEMIDE
     Dosage: 40 MG, 1D
     Route: 048
     Dates: start: 20190416, end: 20190423
  4. BRIMICA [Concomitant]
     Active Substance: ACLIDINIUM BROMIDE\FORMOTEROL FUMARATE
     Indication: CHRONIC OBSTRUCTIVE PULMONARY DISEASE
     Dosage: 340/12 UG, BID
     Route: 055
     Dates: start: 20190418
  5. ALLOPURINOL. [Concomitant]
     Active Substance: ALLOPURINOL
     Dosage: 100 MG, 1D
     Route: 048
     Dates: start: 20190416, end: 20190423
  6. ENOXAPARIN [Concomitant]
     Active Substance: ENOXAPARIN
     Dosage: 0.40 ML, 1D
     Route: 058
     Dates: start: 20190416, end: 20190423
  7. FLUTICASONE FUR+UMECLIDINIUM+VILANTEROL [Suspect]
     Active Substance: FLUTICASONE FUROATE\UMECLIDINIUM BROMIDE\VILANTEROL TRIFENATATE
     Indication: CHRONIC OBSTRUCTIVE PULMONARY DISEASE
     Dosage: 92/55/22 UG, 1D
     Route: 055
     Dates: start: 20190322, end: 20190418
  8. ATORVASTATINA [Concomitant]
     Active Substance: ATORVASTATIN
     Dosage: 20 MG, 1D
     Route: 048
     Dates: start: 20190416, end: 20190423
  9. GABAPENTINA [Concomitant]
     Active Substance: GABAPENTIN
     Dosage: 300 MG, BID
     Route: 048
     Dates: start: 20190416, end: 20190423
  10. OMEPRAZOL [Concomitant]
     Active Substance: OMEPRAZOLE
     Dosage: 20 MG, 1D
     Route: 048
     Dates: start: 20190416, end: 20190423
  11. PULMICORT TURBUHALER [Concomitant]
     Active Substance: BUDESONIDE
     Indication: CHRONIC OBSTRUCTIVE PULMONARY DISEASE
     Dosage: 200 UG, BID
     Route: 055
     Dates: start: 20190418

REACTIONS (1)
  - Chronic obstructive pulmonary disease [Recovered/Resolved]

NARRATIVE: CASE EVENT DATE: 20190416
